FAERS Safety Report 5453673-9 (Version None)
Quarter: 2007Q3

REPORT INFORMATION
  Report Type: 
  Country: None (occurrence: None)
  Receive Date: 20070917
  Receipt Date: 20070911
  Transmission Date: 20080115
  Serious: Yes (Other)
  Sender: FDA-Public Use
  Company Number: HQWYE094711SEP07

PATIENT
  Age: 79 Year
  Sex: Female

DRUGS (1)
  1. OSTELUC [Suspect]
     Dosage: 200 MG; UNSPECIFIED FREQUENCY
     Dates: start: 20050901, end: 20050901

REACTIONS (2)
  - ACUTE POLYNEUROPATHY [None]
  - ERYTHEMA MULTIFORME [None]
